FAERS Safety Report 7033925-1 (Version None)
Quarter: 2010Q4

REPORT INFORMATION
  Report Type: 
  Country: None (occurrence: None)
  Receive Date: 20101007
  Receipt Date: 20100929
  Transmission Date: 20110411
  Serious: Yes (Hospitalization)
  Sender: FDA-Public Use
  Company Number: US-B.I. PHARMACEUTICALS,INC./RIDGEFIELD-2010-BP-11144PF

PATIENT
  Sex: Female
  Weight: 56.4 kg

DRUGS (12)
  1. SPIRIVA [Suspect]
     Dosage: 18 MCG
  2. ANASTROZOLE [Suspect]
     Indication: BREAST CANCER
     Dosage: 1 MG
     Dates: start: 20051213
  3. EFFEXOR XR [Suspect]
     Dosage: 150 MG
  4. FORTEO [Suspect]
     Dosage: 20 MCG
     Route: 058
  5. HYDROCHLOROTHIAZIDE [Suspect]
     Dosage: 25 MG
  6. LISINOPRIL [Suspect]
     Dosage: 40 MG
  7. NORVASC [Suspect]
     Dosage: 10 MG
  8. ASCORBIC ACID [Concomitant]
     Dosage: 500 MG
  9. FISH OIL [Concomitant]
     Dosage: 1000 MG
  10. ASPIRIN [Concomitant]
     Dosage: 81 MG
  11. VITAMIN D3 [Concomitant]
     Dosage: 1000 U
  12. CALCIUM [Concomitant]

REACTIONS (6)
  - BUNDLE BRANCH BLOCK LEFT [None]
  - CARDIAC FAILURE CONGESTIVE [None]
  - MYOCARDIAL INFARCTION [None]
  - MYOCARDIAL ISCHAEMIA [None]
  - RESTRICTIVE CARDIOMYOPATHY [None]
  - TROPONIN [None]
